FAERS Safety Report 8305204-3 (Version None)
Quarter: 2012Q2

REPORT INFORMATION
  Report Type: 
  Country: None (occurrence: None)
  Receive Date: 20120411
  Receipt Date: 20120326
  Transmission Date: 20120825
  Serious: No
  Sender: FDA-Public Use
  Company Number: 2011028797

PATIENT
  Age: 60 Year
  Sex: Female
  Weight: 106.5953 kg

DRUGS (31)
  1. HIZENTRA [Suspect]
  2. RESTASIS [Concomitant]
  3. TRAMADOL HCL [Concomitant]
  4. NORTRIPTYLINE HCL [Concomitant]
  5. GABAPENTIN [Concomitant]
  6. ISOSORBIDE (ISOSORBIDE) [Concomitant]
  7. ADVAIR HFA [Concomitant]
  8. METHOTREXATE [Concomitant]
  9. FLONASE (FLUTICAONE PROPIONATE) [Concomitant]
  10. LASIX [Concomitant]
  11. ESTRADIOL [Concomitant]
  12. PRAVASTATIN [Concomitant]
  13. DONEB (COMBIVENT) [Concomitant]
  14. HIZENTRA [Suspect]
  15. ATENOLOL [Concomitant]
  16. AZITHROMYCIN [Concomitant]
  17. PREDNISONE TAPER (PREDNISONE) [Concomitant]
  18. DEXILANT [Concomitant]
  19. FOLIC ACID [Concomitant]
  20. HIZENTRA [Suspect]
  21. HIZENTRA [Suspect]
  22. SYNTHROID (LEVOTHYRROXINE SODIUM) [Concomitant]
  23. CLOBETASOL (CLOBETASOL) [Concomitant]
  24. CLARITIN [Concomitant]
  25. HIZENTRA [Suspect]
     Indication: IMMUNODEFICIENCY COMMON VARIABLE
     Dosage: SEE IMAGE
     Route: 058
     Dates: start: 20110513
  26. HIZENTRA [Suspect]
     Indication: SELECTIVE IGM IMMUNODEFICIENCY
     Dosage: SEE IMAGE
     Route: 058
     Dates: start: 20110513
  27. HIZENTRA [Suspect]
     Indication: IMMUNODEFICIENCY
     Dosage: SEE IMAGE
     Route: 058
     Dates: start: 20110513
  28. HIZENTRA [Suspect]
     Indication: HYPOGAMMAGLOBULINAEMIA
     Dosage: SEE IMAGE
     Route: 058
     Dates: start: 20110513
  29. HIZENTRA [Suspect]
     Indication: SELECTIVE IGA IMMUNODEFICIENCY
     Dosage: SEE IMAGE
     Route: 058
     Dates: start: 20110513
  30. AMARYL [Concomitant]
  31. SORIATAINE (ACITRETIN) [Concomitant]

REACTIONS (5)
  - INFUSION SITE ERYTHEMA [None]
  - SINUSITIS [None]
  - GASTROENTERITIS VIRAL [None]
  - INFUSION SITE PAIN [None]
  - UPPER RESPIRATORY TRACT INFECTION [None]
